FAERS Safety Report 6035120-1 (Version None)
Quarter: 2009Q1

REPORT INFORMATION
  Report Type: 
  Country: None (occurrence: None)
  Receive Date: 20090112
  Receipt Date: 20090109
  Transmission Date: 20090719
  Serious: Yes (Life-Threatening)
  Sender: FDA-Public Use
  Company Number: NZ-B.I. PHARMACEUTICALS,INC./RIDGEFIELD-2008-BP-18916AU

PATIENT
  Sex: Female
  Weight: 68 kg

DRUGS (4)
  1. COMBIVENT [Suspect]
     Indication: CHRONIC OBSTRUCTIVE PULMONARY DISEASE
     Route: 055
     Dates: start: 20080903, end: 20080903
  2. VENTOLIN [Concomitant]
     Indication: ASTHMA
     Route: 055
  3. VENTOLIN [Concomitant]
     Indication: CHRONIC OBSTRUCTIVE PULMONARY DISEASE
  4. FLUOXETINE [Concomitant]
     Indication: DEPRESSION
     Dosage: 20MG
     Route: 055

REACTIONS (3)
  - CHEST DISCOMFORT [None]
  - RASH GENERALISED [None]
  - WHEEZING [None]
